FAERS Safety Report 8082662 (Version 8)
Quarter: 2014Q1

REPORT INFORMATION
  Report Type: Report from Study
  Country: US (occurrence: US)
  Receive Date: 20110809
  Receipt Date: 20140219
  Transmission Date: 20141002
  Serious: Yes (Congenital Anomaly)
  Sender: FDA-Public Use
  Company Number: US-UCBSA-037883

PATIENT
  Age: 25 Day
  Sex: Male
  Weight: 2.77 kg

DRUGS (2)
  1. VIMPAT [Suspect]
     Indication: EPILEPSY
     Dosage: STOPPED ON 12-14 TH WEEK OF GESTATIONAL AGE
     Route: 064
  2. VIMPAT [Suspect]
     Indication: EPILEPSY
     Dosage: BEGAN ON 12-14 TH WEEK OF GESTATIONAL AGE
     Route: 064

REACTIONS (4)
  - Congenital hydronephrosis [Not Recovered/Not Resolved]
  - Craniocerebral injury [Unknown]
  - Wound secretion [Unknown]
  - Foetal exposure during pregnancy [Unknown]
